FAERS Safety Report 7560025-4 (Version None)
Quarter: 2011Q2

REPORT INFORMATION
  Report Type: 
  Country: None (occurrence: None)
  Receive Date: 20110621
  Receipt Date: 20110613
  Transmission Date: 20111010
  Serious: Yes (Other)
  Sender: FDA-Public Use
  Company Number: PHHY2011US27494

PATIENT
  Sex: Female

DRUGS (4)
  1. LEVOTHYROXINE SODIUM [Concomitant]
  2. CLONAZEPAM [Concomitant]
     Dosage: UNK
  3. GILENYA [Suspect]
     Indication: MULTIPLE SCLEROSIS
     Dosage: 0.5 MG, QD
     Route: 048
     Dates: start: 20110317, end: 20110605
  4. ALPRAZOLAM [Concomitant]
     Dosage: UNK

REACTIONS (22)
  - TOXICITY TO VARIOUS AGENTS [None]
  - MULTIPLE SCLEROSIS RELAPSE [None]
  - ANXIETY [None]
  - ALOPECIA [None]
  - EYE PRURITUS [None]
  - WEIGHT INCREASED [None]
  - NUCLEAR MAGNETIC RESONANCE IMAGING ABNORMAL [None]
  - CONSTIPATION [None]
  - RASH MACULAR [None]
  - NAUSEA [None]
  - DRY EYE [None]
  - INSOMNIA [None]
  - CHEST PAIN [None]
  - PALPITATIONS [None]
  - VISUAL IMPAIRMENT [None]
  - WHITE BLOOD CELL COUNT DECREASED [None]
  - FATIGUE [None]
  - FEELING ABNORMAL [None]
  - DYSPHEMIA [None]
  - FEELING DRUNK [None]
  - DYSPNOEA [None]
  - HEADACHE [None]
